FAERS Safety Report 7131992-8 (Version None)
Quarter: 2010Q4

REPORT INFORMATION
  Report Type: 
  Country: None (occurrence: None)
  Receive Date: 20101129
  Receipt Date: 20101129
  Transmission Date: 20110411
  Serious: Yes (Life-Threatening, Hospitalization)
  Sender: FDA-Public Use
  Company Number: None

PATIENT
  Sex: Female
  Weight: 58.9676 kg

DRUGS (2)
  1. PREMARIN [Suspect]
     Indication: MENOPAUSE
     Dosage: .625 DAILY ORALLY .3 MG DAILY ORALLY
     Route: 048
     Dates: end: 19951029
  2. PREMARIN [Suspect]
     Indication: MENOPAUSE
     Dosage: .625 DAILY ORALLY .3 MG DAILY ORALLY
     Route: 048

REACTIONS (1)
  - MYOCARDIAL INFARCTION [None]
